FAERS Safety Report 25114293 (Version 2)
Quarter: 2025Q2

REPORT INFORMATION
  Report Type: Spontaneous
  Country: JP (occurrence: JP)
  Receive Date: 20250324
  Receipt Date: 20250424
  Transmission Date: 20250716
  Serious: Yes (Hospitalization)
  Sender: MERCK SHARP & DOHME LLC
  Company Number: JP-009507513-2267707

PATIENT
  Age: 78 Year
  Sex: Male

DRUGS (3)
  1. KEYTRUDA [Suspect]
     Active Substance: PEMBROLIZUMAB
     Indication: Head and neck cancer stage IV
     Dosage: 200 MG ? 1/3 WEEKS (12 CYCLES), STRENGTH 100 MG
     Route: 042
     Dates: start: 202406, end: 202502
  2. CISPLATIN\FLUOROURACIL [Suspect]
     Active Substance: CISPLATIN\FLUOROURACIL
     Indication: Head and neck cancer
     Route: 042
     Dates: start: 202406, end: 202410
  3. CISPLATIN\FLUOROURACIL [Suspect]
     Active Substance: CISPLATIN\FLUOROURACIL
     Indication: Head and neck cancer
     Route: 042
     Dates: start: 202406, end: 202410

REACTIONS (3)
  - Transaminases increased [Recovered/Resolved]
  - Aspartate aminotransferase increased [Unknown]
  - Alanine aminotransferase increased [Unknown]

NARRATIVE: CASE EVENT DATE: 20250201
